FAERS Safety Report 7206577-5 (Version None)
Quarter: 2011Q1

REPORT INFORMATION
  Report Type: 
  Country: None (occurrence: None)
  Receive Date: 20110103
  Receipt Date: 20101229
  Transmission Date: 20110831
  Serious: No
  Sender: FDA-Public Use
  Company Number: US-JNJFOC-20101209229

PATIENT
  Sex: Female
  Weight: 67.13 kg

DRUGS (1)
  1. DURAGESIC-50 [Suspect]
     Indication: CANCER PAIN
     Route: 062

REACTIONS (4)
  - PRODUCT ADHESION ISSUE [None]
  - WRONG TECHNIQUE IN DRUG USAGE PROCESS [None]
  - DRUG DOSE OMISSION [None]
  - WITHDRAWAL SYNDROME [None]
